FAERS Safety Report 5568070-5 (Version None)
Quarter: 2007Q4

REPORT INFORMATION
  Report Type: 
  Country: None (occurrence: None)
  Receive Date: 20071220
  Receipt Date: 20071211
  Transmission Date: 20080405
  Serious: Yes (Death)
  Sender: FDA-Public Use
  Company Number: DE-BAYER-200716993GPV

PATIENT
  Age: 45 Year
  Sex: Male
  Weight: 102 kg

DRUGS (5)
  1. AVELOX [Suspect]
     Indication: BRONCHITIS
     Dosage: TOTAL DAILY DOSE: 400 MG  UNIT DOSE: 400 MG
     Route: 048
     Dates: start: 20070911, end: 20070915
  2. INEGY 10/20 [Concomitant]
     Indication: HYPERCHOLESTEROLAEMIA
     Route: 048
     Dates: start: 20070101
  3. L-THYROXIN 100 [Concomitant]
     Indication: GOITRE
     Dosage: UNIT DOSE: 100 ?G
     Route: 065
     Dates: start: 20070219
  4. L-THYROXIN 100 [Concomitant]
     Dates: end: 20061001
  5. METOHEXAL 47.5 [Concomitant]
     Indication: DRUG USE FOR UNKNOWN INDICATION
     Dosage: TOTAL DAILY DOSE: 47.5 MG  UNIT DOSE: 47.5 MG
     Route: 065

REACTIONS (4)
  - CHEST PAIN [None]
  - DIZZINESS [None]
  - LOSS OF CONSCIOUSNESS [None]
  - PULMONARY EMBOLISM [None]
